FAERS Safety Report 4777082-0 (Version None)
Quarter: 2005Q3

REPORT INFORMATION
  Report Type: 
  Country: None (occurrence: None)
  Receive Date: 20050923
  Receipt Date: 20050913
  Transmission Date: 20060218
  Serious: Yes (Life-Threatening, Other)
  Sender: FDA-Public Use
  Company Number: GB-JNJFOC-20050903143

PATIENT
  Sex: Male
  Weight: 70 kg

DRUGS (2)
  1. RISPERDAL CONSTA [Suspect]
     Indication: BIPOLAR DISORDER
     Route: 030
  2. LITHIUM CARBONATE [Concomitant]
     Dosage: TAKEN FOR 20 YEARS, ONE A NIGHT.

REACTIONS (2)
  - ELECTROCARDIOGRAM QT PROLONGED [None]
  - SOMNOLENCE [None]
